FAERS Safety Report 23713667 (Version 2)
Quarter: 2024Q2

REPORT INFORMATION
  Report Type: Spontaneous
  Country: US (occurrence: US)
  Receive Date: 20240405
  Receipt Date: 20240410
  Transmission Date: 20240716
  Serious: No
  Sender: FDA-Public Use
  Company Number: US-JNJFOC-20240405170

PATIENT

DRUGS (3)
  1. SIMPONI ARIA [Suspect]
     Active Substance: GOLIMUMAB
     Indication: Product used for unknown indication
     Dosage: NUMBER OF UNITS INVOLVED IN THIS?COMPLAINT -1
     Route: 041
  2. SIMPONI ARIA [Suspect]
     Active Substance: GOLIMUMAB
     Dosage: NUMBER OF UNITS INVOLVED IN THIS?COMPLAINT-2
     Route: 041
  3. SIMPONI ARIA [Suspect]
     Active Substance: GOLIMUMAB
     Dosage: NUMBER OF UNITS INVOLVED IN THIS?COMPLAINT-1
     Route: 041

REACTIONS (2)
  - Product dose omission issue [Unknown]
  - Product dose omission issue [Unknown]

NARRATIVE: CASE EVENT DATE: 20240401
